FAERS Safety Report 8488929-9 (Version None)
Quarter: 2012Q3

REPORT INFORMATION
  Report Type: 
  Country: None (occurrence: None)
  Receive Date: 20120705
  Receipt Date: 20120625
  Transmission Date: 20120928
  Serious: Yes (Other)
  Sender: FDA-Public Use
  Company Number: US-ROCHE-1034771

PATIENT
  Sex: Male

DRUGS (3)
  1. XELODA [Suspect]
     Indication: PANCREATIC CARCINOMA METASTATIC
  2. TARCEVA [Suspect]
     Indication: PANCREATIC CARCINOMA METASTATIC
     Route: 048
  3. GEMZAR [Concomitant]
     Indication: PANCREATIC CARCINOMA

REACTIONS (4)
  - DEAFNESS [None]
  - RASH [None]
  - NEOPLASM MALIGNANT [None]
  - INCORRECT DOSE ADMINISTERED [None]
